FAERS Safety Report 25604866 (Version 1)
Quarter: 2025Q3

REPORT INFORMATION
  Report Type: Spontaneous
  Country: JP (occurrence: JP)
  Receive Date: 20250725
  Receipt Date: 20250725
  Transmission Date: 20251021
  Serious: Yes (Hospitalization, Other)
  Sender: NOVITIUM PHARMA
  Company Number: JP-NOVITIUMPHARMA-2025JPNVP01739

PATIENT
  Age: 78 Year
  Sex: Male

DRUGS (4)
  1. DEXAMETHASONE [Suspect]
     Active Substance: DEXAMETHASONE
     Indication: Pancreatic carcinoma
  2. SULFAMETHOXAZOLE\TRIMETHOPRIM [Suspect]
     Active Substance: SULFAMETHOXAZOLE\TRIMETHOPRIM
     Indication: Pneumocystis jirovecii pneumonia
     Dosage: TRIMETHOPRIM DOSE
     Route: 048
  3. PACLITAXEL [Concomitant]
     Active Substance: PACLITAXEL
  4. GEMCITABINE [Concomitant]
     Active Substance: GEMCITABINE

REACTIONS (3)
  - Pneumocystis jirovecii pneumonia [Recovering/Resolving]
  - Renal impairment [Unknown]
  - Hyponatraemia [Unknown]
